FAERS Safety Report 5279121-X (Version None)
Quarter: 2007Q1

REPORT INFORMATION
  Report Type: 
  Country: None (occurrence: None)
  Receive Date: 20070327
  Receipt Date: 20070327
  Transmission Date: 20070707
  Serious: Yes (Hospitalization)
  Sender: FDA-Public Use
  Company Number: None

PATIENT
  Sex: Female
  Weight: 74.8435 kg

DRUGS (14)
  1. REVLIMID [Suspect]
     Indication: MULTIPLE MYELOMA
     Dosage: 25MG DAILY 21D/28D PO
     Route: 048
     Dates: start: 20070302, end: 20070322
  2. DECADRON [Concomitant]
  3. GABAPENTIN [Concomitant]
  4. SUCRALFATE [Concomitant]
  5. METFORMIN HCL [Concomitant]
  6. ANZEMET [Concomitant]
  7. NOVOLOG [Concomitant]
  8. PROTONIX [Concomitant]
  9. MORPHINE [Concomitant]
  10. LOVASTATIN [Concomitant]
  11. VICODIN [Concomitant]
  12. ATENOLOL [Concomitant]
  13. COZAAR [Concomitant]
  14. NITROGLYCERIN [Concomitant]

REACTIONS (3)
  - ABDOMINAL PAIN [None]
  - ANAEMIA [None]
  - DYSPNOEA [None]
